FAERS Safety Report 17375655 (Version 1)
Quarter: 2020Q1

REPORT INFORMATION
  Report Type: Spontaneous
  Country: CA (occurrence: CA)
  Receive Date: 20200206
  Receipt Date: 20200206
  Transmission Date: 20200409
  Serious: Yes (Other)
  Sender: FDA-Public Use
  Company Number: CA-TEVA-2020-CA-1179711

PATIENT
  Age: 58 Year
  Sex: Female

DRUGS (11)
  1. CLOBETASOL [Concomitant]
     Active Substance: CLOBETASOL
     Route: 065
  2. PROTOPIC [Concomitant]
     Active Substance: TACROLIMUS
     Route: 061
  3. CLOTRIMAZOLE. [Concomitant]
     Active Substance: CLOTRIMAZOLE
     Route: 065
  4. VOLTAREN [Concomitant]
     Active Substance: DICLOFENAC SODIUM
     Route: 065
  5. CLINDAMYCIN HYDROCHLORIDE. [Suspect]
     Active Substance: CLINDAMYCIN HYDROCHLORIDE
     Indication: DENTAL IMPLANTATION
     Route: 065
  6. VEDOLIZUMAB [Suspect]
     Active Substance: VEDOLIZUMAB
     Indication: CROHN^S DISEASE
     Route: 042
  7. CALCIUM [Concomitant]
     Active Substance: CALCIUM
     Dosage: 500 MILLIGRAM DAILY;
     Route: 065
  8. IRON [Concomitant]
     Active Substance: IRON
     Route: 065
  9. CYANOCOBALAMIN. [Concomitant]
     Active Substance: CYANOCOBALAMIN
     Route: 050
  10. BETAMETHASONE DIPROPIONATE/SALICYLIC ACID [Concomitant]
     Route: 065
  11. VITAMIN D3 [Concomitant]
     Active Substance: CHOLECALCIFEROL
     Dosage: 10000 IU (INTERNATIONAL UNIT) DAILY;
     Route: 065

REACTIONS (3)
  - Crohn^s disease [Recovered/Resolved]
  - Therapy partial responder [Recovered/Resolved]
  - Diarrhoea [Recovered/Resolved]
